FAERS Safety Report 14047016 (Version 2)
Quarter: 2018Q1

REPORT INFORMATION
  Report Type: Report from Study
  Country: US (occurrence: US)
  Receive Date: 20171005
  Receipt Date: 20180103
  Transmission Date: 20180508
  Serious: Yes (Hospitalization, Other)
  Sender: FDA-Public Use
  Company Number: US-GILEAD-2017-0296480

PATIENT
  Age: 77 Year
  Sex: Female

DRUGS (1)
  1. AMBRISENTAN [Suspect]
     Active Substance: AMBRISENTAN
     Indication: PULMONARY ARTERIAL HYPERTENSION
     Dosage: 10 MG, QD
     Route: 065
     Dates: start: 20120131

REACTIONS (6)
  - Deafness bilateral [Unknown]
  - Dyspepsia [Not Recovered/Not Resolved]
  - Cardiac pacemaker insertion [Recovered/Resolved]
  - Complication associated with device [Unknown]
  - Atrial fibrillation [Unknown]
  - Dizziness [Not Recovered/Not Resolved]

NARRATIVE: CASE EVENT DATE: 20170630
